FAERS Safety Report 8279631-7 (Version None)
Quarter: 2012Q2

REPORT INFORMATION
  Report Type: 
  Country: None (occurrence: None)
  Receive Date: 20120412
  Receipt Date: 20111227
  Transmission Date: 20120825
  Serious: No
  Sender: FDA-Public Use
  Company Number: US-ASTRAZENECA-2011SE78383

PATIENT
  Age: 57 Year
  Sex: Female
  Weight: 95.3 kg

DRUGS (7)
  1. NEXIUM [Suspect]
     Indication: DYSPEPSIA
     Route: 048
  2. NEXIUM [Suspect]
     Indication: GASTROOESOPHAGEAL REFLUX DISEASE
     Route: 048
  3. SEROQUEL XR [Concomitant]
     Indication: DEPRESSION
  4. CLONOPIN [Concomitant]
  5. WALBUTRIN [Concomitant]
  6. SEROQUEL XR [Concomitant]
     Indication: BIPOLAR DISORDER
  7. OXCARDIAZEPAM [Concomitant]

REACTIONS (4)
  - DYSPEPSIA [None]
  - DRUG DOSE OMISSION [None]
  - ABDOMINAL PAIN UPPER [None]
  - GASTROOESOPHAGEAL REFLUX DISEASE [None]
